FAERS Safety Report 17316623 (Version 1)
Quarter: 2020Q1

REPORT INFORMATION
  Report Type: Report from Study
  Country: ZA (occurrence: ZA)
  Receive Date: 20200124
  Receipt Date: 20200124
  Transmission Date: 20200409
  Serious: Yes (Hospitalization, Other)
  Sender: FDA-Public Use
  Company Number: ZA-ROCHE-2482414

PATIENT
  Age: 40 Year
  Sex: Female

DRUGS (8)
  1. XYZAL [Concomitant]
     Active Substance: LEVOCETIRIZINE DIHYDROCHLORIDE
     Indication: PRODUCT USED FOR UNKNOWN INDICATION
     Route: 065
  2. CIMETIDINE [Concomitant]
     Active Substance: CIMETIDINE
     Indication: PRODUCT USED FOR UNKNOWN INDICATION
     Route: 065
  3. MONTAIR [MONTELUKAST] [Concomitant]
     Indication: PRODUCT USED FOR UNKNOWN INDICATION
     Route: 065
  4. XOLAIR [Suspect]
     Active Substance: OMALIZUMAB
     Route: 058
     Dates: start: 201801, end: 201801
  5. XOLAIR [Suspect]
     Active Substance: OMALIZUMAB
     Route: 058
     Dates: start: 20190912
  6. XOLAIR [Suspect]
     Active Substance: OMALIZUMAB
     Route: 058
     Dates: start: 20191012
  7. XOLAIR [Suspect]
     Active Substance: OMALIZUMAB
     Indication: CHRONIC SPONTANEOUS URTICARIA
     Route: 058
     Dates: start: 20170727
  8. MONTELUCAST [Concomitant]
     Active Substance: MONTELUKAST SODIUM
     Indication: PRODUCT USED FOR UNKNOWN INDICATION
     Route: 065

REACTIONS (26)
  - Hypotension [Recovering/Resolving]
  - Scratch [Unknown]
  - Dizziness [Unknown]
  - Headache [Unknown]
  - Fatigue [Unknown]
  - Urticaria [Unknown]
  - Swelling face [Unknown]
  - Somnolence [Recovering/Resolving]
  - Sinusitis [Unknown]
  - Tremor [Recovering/Resolving]
  - Panic attack [Unknown]
  - Heart rate decreased [Unknown]
  - Dyspnoea [Unknown]
  - Angioedema [Unknown]
  - Insomnia [Unknown]
  - Quality of life decreased [Unknown]
  - Rash [Unknown]
  - Weight decreased [Not Recovered/Not Resolved]
  - Oropharyngeal pain [Unknown]
  - Pruritus [Unknown]
  - Arthralgia [Unknown]
  - Laryngitis [Unknown]
  - Rhinitis [Unknown]
  - Asthenia [Unknown]
  - Dysphonia [Unknown]
  - Hypothyroidism [Recovering/Resolving]

NARRATIVE: CASE EVENT DATE: 20190727
